FAERS Safety Report 6872533-X (Version None)
Quarter: 2010Q3

REPORT INFORMATION
  Report Type: 
  Country: None (occurrence: None)
  Receive Date: 20100723
  Receipt Date: 20081021
  Transmission Date: 20110219
  Serious: No
  Sender: FDA-Public Use
  Company Number: US-PFIZER INC-2008084738

PATIENT
  Sex: Female
  Weight: 53.98 kg

DRUGS (11)
  1. CHANTIX [Suspect]
     Indication: SMOKING CESSATION THERAPY
     Dates: start: 20080915, end: 20081001
  2. ADVAIR DISKUS 100/50 [Concomitant]
     Indication: EMPHYSEMA
  3. COMBIVENT [Concomitant]
     Indication: EMPHYSEMA
  4. SPIRIVA [Concomitant]
     Indication: EMPHYSEMA
  5. CHOLESTEROL- AND TRIGLYCERIDE REDUCERS [Concomitant]
     Indication: BLOOD CHOLESTEROL INCREASED
  6. METFORMIN HCL [Concomitant]
     Indication: DIABETES MELLITUS
  7. OMEGA-3 MARINE TRIGLYCERIDES [Concomitant]
     Indication: BLOOD CHOLESTEROL ABNORMAL
  8. HYDROCODONE BITARTRATE [Concomitant]
     Indication: PAIN
  9. HYDROCODONE BITARTRATE [Concomitant]
     Indication: ARTHRITIS
  10. MORPHINE [Concomitant]
     Indication: PAIN
  11. MORPHINE [Concomitant]
     Indication: ARTHRITIS

REACTIONS (2)
  - NAUSEA [None]
  - VOMITING [None]
